FAERS Safety Report 25681989 (Version 1)
Quarter: 2025Q3

REPORT INFORMATION
  Report Type: Spontaneous
  Country: US (occurrence: US)
  Receive Date: 20250814
  Receipt Date: 20250814
  Transmission Date: 20251021
  Serious: No
  Sender: INCYTE
  Company Number: US-INCYTE CORPORATION-2025IN008703

PATIENT
  Age: 7 Year

DRUGS (1)
  1. JAKAFI [Suspect]
     Active Substance: RUXOLITINIB
     Indication: Product used for unknown indication
     Dosage: 5 MILLIGRAM, 3X/WEEK

REACTIONS (6)
  - Off label use [Unknown]
  - Liver disorder [Unknown]
  - Skin hyperpigmentation [Unknown]
  - Skin exfoliation [Unknown]
  - Fatigue [Unknown]
  - Decreased appetite [Unknown]
